FAERS Safety Report 22208826 (Version 2)
Quarter: 2023Q2

REPORT INFORMATION
  Report Type: Spontaneous
  Country: US (occurrence: US)
  Receive Date: 20230413
  Receipt Date: 20230526
  Transmission Date: 20230722
  Serious: No
  Sender: FDA-Public Use
  Company Number: US-PFIZER INC-2019456543

PATIENT
  Age: 87 Year
  Sex: Female

DRUGS (2)
  1. SUTENT [Suspect]
     Active Substance: SUNITINIB MALATE
     Indication: Gastrointestinal stromal tumour
     Dosage: 12.5 MG, CYCLIC (TAKES FOR 2 DAYS, THEN SKIPS DAY, AND REPEAT)
     Route: 048
     Dates: start: 20180530
  2. SUTENT [Suspect]
     Active Substance: SUNITINIB MALATE
     Dosage: 12.5 MG, ALTERNATE DAY (TAKE 1 CAPSULE (12.5 MG TOTAL) BY MOUTH EVERY OTHER DAY)
     Route: 048
     Dates: start: 20201117

REACTIONS (2)
  - Drug hypersensitivity [Unknown]
  - Intentional dose omission [Unknown]
